FAERS Safety Report 10152145 (Version 1)
Quarter: 2014Q2

REPORT INFORMATION
  Report Type: Spontaneous
  Country: CN (occurrence: CN)
  Receive Date: 20140505
  Receipt Date: 20140505
  Transmission Date: 20141212
  Serious: Yes (Other)
  Sender: FDA-Public Use
  Company Number: CN-MYLANLABS-2014S1009536

PATIENT
  Age: 44 Year
  Sex: Male

DRUGS (3)
  1. ITRACONAZOLE [Suspect]
     Indication: PNEUMONIA CRYPTOCOCCAL
     Dosage: 400MG DAILY
     Route: 065
  2. AMPHOTERICIN B [Suspect]
     Indication: PNEUMONIA CRYPTOCOCCAL
     Route: 065
  3. VORICONAZOLE [Suspect]
     Indication: PNEUMONIA CRYPTOCOCCAL
     Route: 065

REACTIONS (4)
  - Pneumonia cryptococcal [Recovering/Resolving]
  - Condition aggravated [Recovering/Resolving]
  - Gastrointestinal disorder [Unknown]
  - Hypokalaemia [Unknown]
